FAERS Safety Report 9842833 (Version 1)
Quarter: 2014Q1

REPORT INFORMATION
  Report Type: Spontaneous
  Country: IN (occurrence: IN)
  Receive Date: 20140124
  Receipt Date: 20140124
  Transmission Date: 20141002
  Serious: Yes (Other)
  Sender: FDA-Public Use
  Company Number: PHHY2014IN004870

PATIENT
  Sex: 0

DRUGS (1)
  1. METHYLPREDNISOLONE [Suspect]
     Indication: PANCYTOPENIA
     Dosage: 30 MG/KG, PER DAY
     Route: 042

REACTIONS (4)
  - Posterior reversible encephalopathy syndrome [Recovered/Resolved]
  - Headache [Recovered/Resolved]
  - Vision blurred [Recovered/Resolved]
  - Grand mal convulsion [Recovered/Resolved]
